FAERS Safety Report 13441689 (Version 2)
Quarter: 2017Q3

REPORT INFORMATION
  Report Type: Report from Study
  Country: None (occurrence: US)
  Receive Date: 20170414
  Receipt Date: 20170921
  Transmission Date: 20171127
  Serious: Yes (Hospitalization, Other)
  Sender: FDA-Public Use
  Company Number: US-ABBVIE-17K-163-1877467-00

PATIENT
  Age: 49 Year
  Sex: Male
  Weight: 79.45 kg

DRUGS (2)
  1. HUMIRA [Suspect]
     Active Substance: ADALIMUMAB
     Indication: CROHN^S DISEASE
     Route: 058
     Dates: start: 2012, end: 201611
  2. HUMIRA [Suspect]
     Active Substance: ADALIMUMAB
     Route: 058
     Dates: start: 2017

REACTIONS (10)
  - Asthenia [Recovered/Resolved]
  - Listless [Recovered/Resolved]
  - Large intestine perforation [Recovered/Resolved]
  - Crohn^s disease [Unknown]
  - Colitis [Unknown]
  - Anaemia [Recovered/Resolved]
  - Splenic infection [Recovered/Resolved]
  - Haemoglobin decreased [Recovered/Resolved]
  - Malaise [Recovered/Resolved]
  - Hypotension [Recovered/Resolved]

NARRATIVE: CASE EVENT DATE: 201611
